FAERS Safety Report 7958063-2 (Version None)
Quarter: 2011Q4

REPORT INFORMATION
  Report Type: 
  Country: None (occurrence: None)
  Receive Date: 20111205
  Receipt Date: 20111129
  Transmission Date: 20120403
  Serious: Yes (Life-Threatening, Other)
  Sender: FDA-Public Use
  Company Number: IE-ASTRAZENECA-2011SE70453

PATIENT
  Age: 73 Year
  Sex: Male
  Weight: 96 kg

DRUGS (3)
  1. VIMOVO [Suspect]
     Indication: MUSCULOSKELETAL PAIN
     Dosage: 500 MG NAPROXEN + 20 MG ESOMEPRAZOLE MAGNESIUM, 1 TABLET TWO TIMES A DAY
     Route: 048
  2. METFORMIN HCL [Concomitant]
     Route: 048
     Dates: end: 20110913
  3. CAMCOLIT [Concomitant]
     Indication: DEPRESSION
     Route: 048
     Dates: end: 20110913

REACTIONS (2)
  - RENAL FAILURE ACUTE [None]
  - FALL [None]
